FAERS Safety Report 9582052 (Version 1)
Quarter: 2013Q4

REPORT INFORMATION
  Report Type: Spontaneous
  Country: US (occurrence: US)
  Receive Date: 20131002
  Receipt Date: 20131002
  Transmission Date: 20140711
  Serious: Yes (Other)
  Sender: FDA-Public Use
  Company Number: US-BAXTER-2013BAX037917

PATIENT
  Age: 36 Year
  Sex: Female

DRUGS (1)
  1. OSMITROL INJECTION (MANNITOL INJECTION, USP) [Suspect]
     Indication: RENAL FAILURE ACUTE
     Route: 042

REACTIONS (3)
  - Toxicity to various agents [Recovered/Resolved]
  - Fluid overload [Recovered/Resolved]
  - Confusional state [Recovered/Resolved]
